FAERS Safety Report 8992921 (Version 1)
Quarter: 2013Q1

REPORT INFORMATION
  Report Type: Report from Study
  Country: US (occurrence: US)
  Receive Date: 20130102
  Receipt Date: 20130102
  Transmission Date: 20140127
  Serious: Yes (Other)
  Sender: FDA-Public Use
  Company Number: US-JNJFOC-20121211731

PATIENT
  Age: 15 Year
  Sex: Male
  Weight: 56.6 kg

DRUGS (8)
  1. REMICADE [Suspect]
     Indication: CROHN^S DISEASE
     Route: 042
     Dates: start: 20100908
  2. FERROUS SULFATE [Concomitant]
  3. FLUOCINONIDE [Concomitant]
     Route: 061
  4. METHOTREXATE [Concomitant]
  5. MUPIROCIN [Concomitant]
  6. HYDROCORTISONE W/NEOMYCIN/POLYMYCIN B [Concomitant]
  7. FOLIC ACID [Concomitant]
  8. KETOCONAZOLE [Concomitant]

REACTIONS (1)
  - Subcutaneous abscess [Recovered/Resolved]
